FAERS Safety Report 9917329 (Version 1)
Quarter: 2014Q1

REPORT INFORMATION
  Report Type: Spontaneous
  Country: JP (occurrence: JP)
  Receive Date: 20140221
  Receipt Date: 20140221
  Transmission Date: 20141002
  Serious: Yes (Hospitalization, Other)
  Sender: FDA-Public Use
  Company Number: JP-009507513-1402JPN009092

PATIENT
  Sex: 0

DRUGS (3)
  1. PEGINTRON [Suspect]
     Dosage: DAILY DOSAGE UNKNOWN
     Route: 058
  2. REBETOL [Suspect]
     Dosage: DAILY DOSAGE UNKNOWN
     Route: 048
  3. SIMEPREVIR [Concomitant]
     Dosage: DAILY DOSAGE UNKNOWN
     Route: 065

REACTIONS (2)
  - Pancytopenia [Unknown]
  - Malaise [Unknown]
